FAERS Safety Report 22533944 (Version 2)
Quarter: 2023Q2

REPORT INFORMATION
  Report Type: Spontaneous
  Country: EG (occurrence: EG)
  Receive Date: 20230608
  Receipt Date: 20230616
  Transmission Date: 20230722
  Serious: Yes (Other)
  Sender: FDA-Public Use
  Company Number: EG-NOVOPROD-1072132

PATIENT
  Age: 759 Month
  Sex: Male
  Weight: 170 kg

DRUGS (2)
  1. INSULIN HUMAN [Suspect]
     Active Substance: INSULIN HUMAN
     Indication: Product used for unknown indication
     Dosage: 55 IU, QD(30IU AM +25IU PM )
  2. INSULIN HUMAN [Suspect]
     Active Substance: INSULIN HUMAN
     Dosage: 80 IU, QD(45 IU AM + 35 IU PM)

REACTIONS (1)
  - Cerebrovascular accident [Unknown]
